FAERS Safety Report 8822208 (Version 3)
Quarter: 2012Q4

REPORT INFORMATION
  Report Type: 
  Country: US (occurrence: US)
  Receive Date: 20121003
  Receipt Date: 20121128
  Transmission Date: 20130627
  Serious: No
  Sender: FDA-Public Use
  Company Number: US-PFIZER INC-2012240168

PATIENT
  Age: 76 Year
  Sex: Female
  Weight: 68.03 kg

DRUGS (4)
  1. GLUCOTROL XL [Suspect]
     Indication: DIABETES
     Dosage: 10 mg, daily
     Dates: end: 201209
  2. CELEBREX [Suspect]
     Indication: ARTHRITIS
     Dosage: 200 mg, Daily
     Dates: end: 201209
  3. DETROL LA [Suspect]
     Indication: BLADDER DISORDER
     Dosage: 4 mg, daily
     Dates: end: 201209
  4. LEVOTHYROXINE [Concomitant]
     Indication: THYROID DISORDER
     Dosage: 50 mg, daily

REACTIONS (1)
  - No adverse event [Not Recovered/Not Resolved]
